FAERS Safety Report 24093085 (Version 1)
Quarter: 2024Q3

REPORT INFORMATION
  Report Type: Report from Study
  Country: ES (occurrence: ES)
  Receive Date: 20240715
  Receipt Date: 20240715
  Transmission Date: 20241016
  Serious: Yes (Hospitalization)
  Sender: MYLAN
  Company Number: ES-KYOWA KIRIN-2018BKK000509

PATIENT
  Age: 69 Year
  Sex: Male

DRUGS (27)
  1. DEXAMETHASONE [Suspect]
     Active Substance: DEXAMETHASONE
     Indication: Cancer pain
     Dosage: UNK
     Route: 065
     Dates: start: 201705
  2. NALOXEGOL [Suspect]
     Active Substance: NALOXEGOL
     Indication: Constipation
     Dosage: 25 MILLIGRAM, BID
     Route: 065
     Dates: start: 201705
  3. MORPHINE [Suspect]
     Active Substance: MORPHINE
     Indication: Cancer pain
     Dosage: 130 MILLIGRAM, BID
     Route: 065
     Dates: end: 201603
  4. MORPHINE [Suspect]
     Active Substance: MORPHINE
     Dosage: 100 MILLIGRAM, BID
     Route: 065
     Dates: start: 201306, end: 201402
  5. MORPHINE [Suspect]
     Active Substance: MORPHINE
     Dosage: 130 MILLIGRAM, BID
     Route: 065
     Dates: start: 201402
  6. MORPHINE [Suspect]
     Active Substance: MORPHINE
     Dosage: UNK
     Route: 065
     Dates: start: 201411
  7. MORPHINE [Suspect]
     Active Substance: MORPHINE
     Dosage: UNK
     Route: 065
     Dates: start: 201603, end: 201610
  8. MORPHINE [Suspect]
     Active Substance: MORPHINE
     Dosage: 400 MILLIGRAM, BID
     Route: 065
     Dates: start: 201610, end: 201705
  9. MORPHINE [Suspect]
     Active Substance: MORPHINE
     Indication: Cancer pain
     Dosage: UNK
     Route: 065
     Dates: start: 201705
  10. MORPHINE [Suspect]
     Active Substance: MORPHINE
     Dosage: UNK
     Route: 058
     Dates: start: 201801
  11. ABSTRAL [Suspect]
     Active Substance: FENTANYL CITRATE
     Indication: Breakthrough pain
     Dosage: 300 MICROGRAM
     Route: 060
  12. ABSTRAL [Suspect]
     Active Substance: FENTANYL CITRATE
     Dosage: 200 MICROGRAM
     Route: 060
     Dates: end: 201603
  13. ABSTRAL [Suspect]
     Active Substance: FENTANYL CITRATE
     Dosage: 400 MICROGRAM
     Route: 060
     Dates: end: 201705
  14. ABSTRAL [Suspect]
     Active Substance: FENTANYL CITRATE
     Dosage: 100 MICROGRAM
     Route: 060
     Dates: start: 201306, end: 201402
  15. ABSTRAL [Suspect]
     Active Substance: FENTANYL CITRATE
     Dosage: 200 MICROGRAM
     Route: 060
     Dates: start: 201402, end: 201411
  16. ABSTRAL [Suspect]
     Active Substance: FENTANYL CITRATE
     Dosage: 200 MICROGRAM
     Route: 060
     Dates: start: 201411
  17. ABSTRAL [Suspect]
     Active Substance: FENTANYL CITRATE
     Dosage: UNK
     Route: 060
     Dates: start: 201603, end: 201610
  18. ABSTRAL [Suspect]
     Active Substance: FENTANYL CITRATE
     Dosage: 300 MICROGRAM
     Route: 060
     Dates: start: 201610
  19. ABSTRAL [Suspect]
     Active Substance: FENTANYL CITRATE
     Dosage: 300 MICROGRAM
     Route: 060
     Dates: start: 201705
  20. ABSTRAL [Suspect]
     Active Substance: FENTANYL CITRATE
     Dosage: 400 MICROGRAM
     Route: 060
     Dates: start: 201801
  21. SCOPOLAMINE [Suspect]
     Active Substance: SCOPOLAMINE
     Indication: Cancer pain
     Dosage: UNK
     Route: 065
     Dates: start: 201705
  22. DOCETAXEL [Concomitant]
     Active Substance: DOCETAXEL\DOCETAXEL ANHYDROUS
     Indication: Prostate cancer
     Dosage: UNK
     Route: 065
  23. FENTANYL [Concomitant]
     Active Substance: FENTANYL\FENTANYL CITRATE
     Indication: Cancer pain
     Dosage: 300 MICROGRAM, Q3D
     Route: 062
  24. ZOLEDRONIC ACID [Concomitant]
     Active Substance: ZOLEDRONIC ACID
     Indication: Product used for unknown indication
     Dosage: UNK
     Route: 065
     Dates: end: 201610
  25. PREDNISONE [Concomitant]
     Active Substance: PREDNISONE
     Indication: Prostate cancer
     Dosage: 10 MILLIGRAM, 1/DAY
     Route: 065
     Dates: start: 201411
  26. DENOSUMAB [Concomitant]
     Active Substance: DENOSUMAB
     Indication: Product used for unknown indication
     Dosage: 120 MILLIGRAM, 1/MONTH
     Route: 065
     Dates: start: 201610
  27. ABIRATERONE [Concomitant]
     Active Substance: ABIRATERONE
     Indication: Prostate cancer
     Dosage: UNK
     Route: 065
     Dates: start: 201411, end: 201610

REACTIONS (7)
  - Condition aggravated [Unknown]
  - Weight decreased [Unknown]
  - Asthenia [Unknown]
  - Decreased appetite [Unknown]
  - Constipation [Recovering/Resolving]
  - Intentional product misuse [Unknown]
  - Inappropriate schedule of product administration [Unknown]
